FAERS Safety Report 8512230 (Version 2)
Quarter: 2012Q4

REPORT INFORMATION
  Report Type: 
  Country: US (occurrence: US)
  Receive Date: 20120413
  Receipt Date: 20120829
  Transmission Date: 20130627
  Serious: Yes (Hospitalization)
  Sender: FDA-Public Use
  Company Number: US-ASTRAZENECA-2010SE32357

PATIENT
  Age: 33 Year
  Sex: Female

DRUGS (1)
  1. NEXIUM [Suspect]
     Indication: DYSPEPSIA
     Route: 048

REACTIONS (6)
  - Gastrooesophageal reflux disease [Unknown]
  - Eating disorder [Unknown]
  - Dyspepsia [Recovered/Resolved]
  - Aphagia [Unknown]
  - Weight decreased [Unknown]
  - Drug dose omission [Unknown]
